FAERS Safety Report 12478971 (Version 1)
Quarter: 2016Q2

REPORT INFORMATION
  Report Type: Spontaneous
  Country: US (occurrence: US)
  Receive Date: 20160620
  Receipt Date: 20160620
  Transmission Date: 20160815
  Serious: Yes (Hospitalization, Other)
  Sender: FDA-Public Use
  Company Number: US-PAR PHARMACEUTICAL COMPANIES-2016SCPR015539

PATIENT

DRUGS (16)
  1. VORICONAZOLE. [Interacting]
     Active Substance: VORICONAZOLE
     Dosage: 300 MG, EVERY 12 HOURS, ON DAY 52
     Route: 048
  2. CEFEPIME [Concomitant]
     Active Substance: CEFEPIME HYDROCHLORIDE
     Indication: PURULENT DISCHARGE
     Dosage: UNK, UNKNOWN
     Route: 065
  3. DEXAMETHASONE. [Suspect]
     Active Substance: DEXAMETHASONE
     Indication: BRAIN OEDEMA
     Dosage: 4 MG, EVERY 8 HOURS
     Route: 048
  4. DEXAMETHASONE. [Interacting]
     Active Substance: DEXAMETHASONE
     Dosage: 2 MG, EVERY 8 HOURS
     Route: 048
  5. DEXAMETHASONE. [Interacting]
     Active Substance: DEXAMETHASONE
     Dosage: 0.5 MG, EVERY 8 HOURS
     Route: 048
  6. VORICONAZOLE. [Interacting]
     Active Substance: VORICONAZOLE
     Dosage: 300 MG, EVERY 12 HOURS, ON DAY 44
     Route: 042
  7. VORICONAZOLE. [Interacting]
     Active Substance: VORICONAZOLE
     Indication: PHAEHYPHOMYCOSIS
     Dosage: 250 MG (4 MG/KG), EVERY 12 HOURS, FOR ONE WEEK
     Route: 048
  8. DEXAMETHASONE. [Interacting]
     Active Substance: DEXAMETHASONE
     Dosage: 1 MG, EVERY 8 HOURS
     Route: 048
  9. METRONIDAZOLE. [Concomitant]
     Active Substance: METRONIDAZOLE
     Indication: PURULENT DISCHARGE
     Dosage: UNK, UNKNOWN
     Route: 065
  10. VORICONAZOLE. [Interacting]
     Active Substance: VORICONAZOLE
     Indication: PHAEHYPHOMYCOSIS
     Dosage: 400 MG (6 MG/KG), EVERY 12 HOURS, 2 DOSES
     Route: 042
  11. VORICONAZOLE. [Interacting]
     Active Substance: VORICONAZOLE
     Dosage: 250 MG, EVERY 12 HOURS, ON DAY 40
     Route: 042
  12. VORICONAZOLE. [Interacting]
     Active Substance: VORICONAZOLE
     Dosage: 250 MG (4 MG/KG), EVERY 12 HOURS
     Route: 042
  13. VORICONAZOLE. [Interacting]
     Active Substance: VORICONAZOLE
     Dosage: 200 MG (4 MG/KG), EVERY 12 HOURS, AFTER 1 WEEK
     Route: 048
  14. VORICONAZOLE. [Interacting]
     Active Substance: VORICONAZOLE
     Dosage: 250 MG (4 MG/KG), EVERY 12 HOURS
     Route: 048
  15. DEXAMETHASONE. [Interacting]
     Active Substance: DEXAMETHASONE
     Dosage: 3 MG, EVERY 8 HOURS
     Route: 048
  16. VANCOMYCIN [Concomitant]
     Active Substance: VANCOMYCIN
     Indication: PURULENT DISCHARGE
     Dosage: UNK, UNKNOWN
     Route: 065

REACTIONS (6)
  - Drug interaction [Unknown]
  - Hypophagia [Unknown]
  - Phaehyphomycosis [Recovering/Resolving]
  - Cognitive disorder [Recovering/Resolving]
  - Drug level below therapeutic [Unknown]
  - Disease progression [Recovering/Resolving]
